FAERS Safety Report 17102954 (Version 1)
Quarter: 2019Q4

REPORT INFORMATION
  Report Type: Spontaneous
  Country: US (occurrence: US)
  Receive Date: 20191202
  Receipt Date: 20191202
  Transmission Date: 20200122
  Serious: Yes (Hospitalization, Disabling, Other)
  Sender: FDA-Public Use
  Company Number: None

PATIENT
  Age: 58 Year
  Weight: 94.5 kg

DRUGS (2)
  1. BUPROPION HCL 150 MG TABLET [Suspect]
     Active Substance: BUPROPION HYDROCHLORIDE
     Indication: NERVOUS SYSTEM DISORDER
     Dosage: ?          QUANTITY:1 CAPSULE(S);?
     Route: 048
     Dates: start: 20120710, end: 20170907
  2. DULOXETINE HCL DR 60 MG CAP [Suspect]
     Active Substance: DULOXETINE HYDROCHLORIDE
     Indication: NERVOUS SYSTEM DISORDER
     Dosage: ?          QUANTITY:1 CAPSULE(S);?
     Route: 048
     Dates: start: 20070131, end: 20180401

REACTIONS (14)
  - Urticaria [None]
  - Vitamin D decreased [None]
  - Blood cholesterol increased [None]
  - Dizziness [None]
  - Anaesthesia [None]
  - Gastrooesophageal reflux disease [None]
  - Cognitive disorder [None]
  - Nerve injury [None]
  - Amnesia [None]
  - Gait disturbance [None]
  - Injury [None]
  - Skin cancer [None]
  - Job dissatisfaction [None]
  - Spinal disorder [None]

NARRATIVE: CASE EVENT DATE: 20170929
